FAERS Safety Report 10923963 (Version 1)
Quarter: 2015Q1

REPORT INFORMATION
  Report Type: Report from Study
  Country: CA (occurrence: CA)
  Receive Date: 20150318
  Receipt Date: 20150318
  Transmission Date: 20150721
  Serious: Yes (Hospitalization)
  Sender: FDA-Public Use
  Company Number: CA-ROCHE-1550400

PATIENT
  Age: 64 Year
  Sex: Male

DRUGS (10)
  1. RITUXIMAB [Suspect]
     Active Substance: RITUXIMAB
     Indication: NON-HODGKIN^S LYMPHOMA
     Route: 042
     Dates: start: 20101210
  2. LISINOPRIL. [Concomitant]
     Active Substance: LISINOPRIL
     Route: 065
     Dates: start: 2006
  3. INSULIN [Concomitant]
     Active Substance: INSULIN NOS
     Route: 065
     Dates: start: 1959
  4. CYTARABINE. [Suspect]
     Active Substance: CYTARABINE
     Indication: NON-HODGKIN^S LYMPHOMA
     Dosage: ACTUAL DOSE: 4133.70MG
     Route: 042
     Dates: start: 20110111, end: 20110111
  5. CISPLATIN. [Suspect]
     Active Substance: CISPLATIN
     Indication: NON-HODGKIN^S LYMPHOMA
     Dosage: ACTUAL DOSE: 206.70MG
     Route: 042
     Dates: start: 20110111, end: 20110111
  6. CYTARABINE. [Suspect]
     Active Substance: CYTARABINE
     Route: 042
     Dates: start: 20101210
  7. DEXAMETHASONE. [Suspect]
     Active Substance: DEXAMETHASONE
     Dosage: ACTUAL DOSE: 40MG
     Route: 048
     Dates: start: 20110111, end: 20110111
  8. RITUXIMAB [Suspect]
     Active Substance: RITUXIMAB
     Dosage: ACTUAL DOSE: 775MG
     Route: 042
     Dates: start: 20110111, end: 20110111
  9. CISPLATIN. [Suspect]
     Active Substance: CISPLATIN
     Route: 042
     Dates: start: 20101210
  10. DEXAMETHASONE. [Suspect]
     Active Substance: DEXAMETHASONE
     Indication: NON-HODGKIN^S LYMPHOMA
     Route: 048
     Dates: start: 20101210

REACTIONS (1)
  - Colitis [Unknown]

NARRATIVE: CASE EVENT DATE: 20110131
